FAERS Safety Report 25011350 (Version 1)
Quarter: 2025Q1

REPORT INFORMATION
  Report Type: Spontaneous
  Country: PL (occurrence: PL)
  Receive Date: 20250226
  Receipt Date: 20250226
  Transmission Date: 20250409
  Serious: Yes (Other)
  Sender: GLAND PHARMA LTD
  Company Number: PL-GLANDPHARMA-PL-2025GLNLIT00329

PATIENT
  Age: 74 Year
  Sex: Female

DRUGS (5)
  1. HALOPERIDOL DECANOATE [Suspect]
     Active Substance: HALOPERIDOL DECANOATE
     Indication: Schizophrenia
     Route: 065
  2. RAMIPRIL [Suspect]
     Active Substance: RAMIPRIL
     Indication: Essential hypertension
     Route: 065
  3. TOLTERODINE [Concomitant]
     Active Substance: TOLTERODINE
     Indication: Urinary incontinence
     Route: 065
  4. LERCANIDIPINE [Concomitant]
     Active Substance: LERCANIDIPINE
     Indication: Essential hypertension
     Route: 065
  5. TRIMETAZIDINE [Concomitant]
     Active Substance: TRIMETAZIDINE
     Indication: Myocardial ischaemia
     Route: 065

REACTIONS (1)
  - Pemphigoid [Recovered/Resolved]
